FAERS Safety Report 11248350 (Version 1)
Quarter: 2015Q3

REPORT INFORMATION
  Report Type: Spontaneous
  Country: US (occurrence: US)
  Receive Date: 20150708
  Receipt Date: 20150708
  Transmission Date: 20151125
  Serious: Yes (Life-Threatening, Hospitalization)
  Sender: FDA-Public Use
  Company Number: US-ELI_LILLY_AND_COMPANY-US200810004643

PATIENT
  Age: 9 Year
  Sex: Male
  Weight: 41.72 kg

DRUGS (4)
  1. TRILEPTAL [Concomitant]
     Active Substance: OXCARBAZEPINE
     Dosage: UNK, UNKNOWN
     Route: 065
     Dates: start: 200807
  2. DIAZEPAM. [Concomitant]
     Active Substance: DIAZEPAM
     Dosage: UNK, UNKNOWN
     Route: 065
     Dates: start: 200709
  3. CLONIDINE. [Concomitant]
     Active Substance: CLONIDINE
     Dosage: UNK, UNKNOWN
     Route: 065
     Dates: start: 200806
  4. PROZAC [Suspect]
     Active Substance: FLUOXETINE HYDROCHLORIDE
     Dosage: 10 MG, EACH MORNING
     Route: 048
     Dates: start: 20080920, end: 20080929

REACTIONS (6)
  - Suicide attempt [Recovered/Resolved]
  - Delusional perception [Recovered/Resolved]
  - Suicidal ideation [Recovered/Resolved]
  - Mania [Recovered/Resolved]
  - Bipolar disorder [Recovered/Resolved]
  - Anger [Recovered/Resolved]

NARRATIVE: CASE EVENT DATE: 20080926
